FAERS Safety Report 7967530-7 (Version None)
Quarter: 2011Q4

REPORT INFORMATION
  Report Type: 
  Country: None (occurrence: None)
  Receive Date: 20111207
  Receipt Date: 20111121
  Transmission Date: 20120403
  Serious: Yes (Other)
  Sender: FDA-Public Use
  Company Number: 2011P1012008

PATIENT
  Sex: Male

DRUGS (1)
  1. FLUOROURACIL [Suspect]
     Dosage: X1;TOP
     Route: 061

REACTIONS (3)
  - PRODUCT CONTAINER SEAL ISSUE [None]
  - THERMAL BURN [None]
  - PRODUCT PACKAGING QUANTITY ISSUE [None]
